FAERS Safety Report 5593036-9 (Version None)
Quarter: 2008Q1

REPORT INFORMATION
  Report Type: 
  Country: None (occurrence: None)
  Receive Date: 20080114
  Receipt Date: 20071231
  Transmission Date: 20080703
  Serious: Yes (Hospitalization, Other)
  Sender: FDA-Public Use
  Company Number: 2008AP000006

PATIENT
  Age: 37 Year
  Sex: Female

DRUGS (8)
  1. LAMOTRIGINE [Suspect]
     Indication: BIPOLAR I DISORDER
     Dosage: 12.5 MG; HS, 25 MG; HS
  2. DIVALPROEX SODIUM [Suspect]
     Indication: BIPOLAR I DISORDER
     Dosage: 1000 MG; PO; PM, 250 MG; PO; AM, 1000 MG; PO; HS
     Route: 048
  3. ZOPICLONE (ZOPICLONE) [Concomitant]
  4. RISPERIDONE [Concomitant]
  5. SERTRALINE [Concomitant]
  6. QUETIAPINE FUMARATE [Concomitant]
  7. SERTRALINE [Concomitant]
  8. OLANZAPINE [Concomitant]

REACTIONS (9)
  - ANXIETY [None]
  - DRUG INTERACTION [None]
  - ENERGY INCREASED [None]
  - HYPOMANIA [None]
  - LEUKOPENIA [None]
  - MYALGIA [None]
  - NEUTROPHIL COUNT DECREASED [None]
  - RASH ERYTHEMATOUS [None]
  - VISION BLURRED [None]
